FAERS Safety Report 7597605-6 (Version None)
Quarter: 2011Q3

REPORT INFORMATION
  Report Type: 
  Country: None (occurrence: None)
  Receive Date: 20110708
  Receipt Date: 20110629
  Transmission Date: 20111222
  Serious: Yes (Other)
  Sender: FDA-Public Use
  Company Number: US-JNJFOC-20110700844

PATIENT
  Age: 42 Year
  Sex: Male
  Weight: 81.65 kg

DRUGS (2)
  1. EXTRA STRENGTH TYLENOL [Suspect]
     Indication: HEADACHE
     Dosage: 500MG-1000MG
     Route: 048
     Dates: start: 20110623, end: 20110626
  2. EXTRA STRENGTH TYLENOL [Suspect]
     Route: 048

REACTIONS (3)
  - HAEMATEMESIS [None]
  - RECTAL HAEMORRHAGE [None]
  - PRODUCT ODOUR ABNORMAL [None]
